FAERS Safety Report 6579638-1 (Version None)
Quarter: 2010Q1

REPORT INFORMATION
  Report Type: 
  Country: None (occurrence: None)
  Receive Date: 20100212
  Receipt Date: 20100209
  Transmission Date: 20100710
  Serious: No
  Sender: FDA-Public Use
  Company Number: US-B.I. PHARMACEUTICALS,INC./RIDGEFIELD-2010-BP-01625BP

PATIENT
  Sex: Male

DRUGS (2)
  1. MELOXICAM [Suspect]
  2. DIOVAN [Suspect]

REACTIONS (6)
  - ABDOMINAL PAIN UPPER [None]
  - ASTHENIA [None]
  - CHILLS [None]
  - HOT FLUSH [None]
  - PRESYNCOPE [None]
  - VOMITING [None]
